FAERS Safety Report 19035837 (Version 2)
Quarter: 2021Q2

REPORT INFORMATION
  Report Type: Report from Study
  Country: IT (occurrence: IT)
  Receive Date: 20210321
  Receipt Date: 20210410
  Transmission Date: 20210717
  Serious: Yes (Hospitalization)
  Sender: FDA-Public Use
  Company Number: IT-TEVA-2021-IT-1891542

PATIENT
  Age: 78 Year
  Sex: Female

DRUGS (8)
  1. BISOPROLOL FUMARATE. [Suspect]
     Active Substance: BISOPROLOL FUMARATE
     Indication: ARRHYTHMIA
     Dosage: 10 MG
     Route: 048
     Dates: start: 20210121
  2. COUMADIN [Concomitant]
     Active Substance: WARFARIN SODIUM
  3. EUTIROX 25 MICROGRAMMI COMPRESSE [Concomitant]
     Active Substance: LEVOTHYROXINE SODIUM
  4. POTASSIUM CHLORIDE. [Concomitant]
     Active Substance: POTASSIUM CHLORIDE
  5. PANTOPRAZOLE [Concomitant]
     Active Substance: PANTOPRAZOLE
  6. AMIODARONE [Interacting]
     Active Substance: AMIODARONE
     Indication: HYPERTENSION
     Dosage: 200 MG
     Route: 048
     Dates: start: 20210121
  7. FUROSEMIDE. [Interacting]
     Active Substance: FUROSEMIDE
     Indication: PULMONARY OEDEMA
     Dosage: 250 MG
     Route: 048
     Dates: start: 20210121
  8. ZAROXOLYN [Interacting]
     Active Substance: METOLAZONE
     Indication: HYPERTENSION
     Dosage: 20 MG
     Route: 048
     Dates: start: 20210121

REACTIONS (5)
  - Hypokinesia [Recovering/Resolving]
  - Bradyphrenia [Recovering/Resolving]
  - Hypotension [Recovering/Resolving]
  - Syncope [Recovering/Resolving]
  - Drug interaction [Recovering/Resolving]

NARRATIVE: CASE EVENT DATE: 20210126
